FAERS Safety Report 21280430 (Version 1)
Quarter: 2022Q3

REPORT INFORMATION
  Report Type: Spontaneous
  Country: US (occurrence: US)
  Receive Date: 20220901
  Receipt Date: 20220901
  Transmission Date: 20221027
  Serious: No
  Sender: FDA-Public Use
  Company Number: US-TAKEDA-2022TUS059784

PATIENT
  Sex: Female
  Weight: 85 kg

DRUGS (1)
  1. VYVANSE [Suspect]
     Active Substance: LISDEXAMFETAMINE DIMESYLATE
     Indication: Attention deficit hyperactivity disorder
     Dosage: 50 MILLIGRAM, QD
     Route: 065

REACTIONS (8)
  - Tremor [Unknown]
  - Anxiety [Unknown]
  - Therapy interrupted [Unknown]
  - Muscle rigidity [Unknown]
  - Limb discomfort [Unknown]
  - Paraesthesia [Unknown]
  - Feeling abnormal [Unknown]
  - Extra dose administered [Unknown]
